FAERS Safety Report 6315599-8 (Version None)
Quarter: 2009Q3

REPORT INFORMATION
  Report Type: 
  Country: None (occurrence: None)
  Receive Date: 20090818
  Receipt Date: 20090805
  Transmission Date: 20100115
  Serious: Yes (Hospitalization)
  Sender: FDA-Public Use
  Company Number: 1000003822

PATIENT
  Age: 49 Year
  Sex: Female

DRUGS (8)
  1. CITALOPRAM HYDROBROMIDE [Suspect]
     Dosage: 60 MG (20 MG, 3 IN 1 D), ORAL
     Route: 048
     Dates: start: 20070607, end: 20080907
  2. MOTILIUM [Concomitant]
  3. XYZAL [Concomitant]
  4. TRANSIPEG [Concomitant]
  5. LEVOTHYROX (TABLETS) [Concomitant]
  6. PRAXINOR [Concomitant]
  7. ZINNAT [Concomitant]
  8. OFLOCET [Concomitant]

REACTIONS (2)
  - HEPATIC STEATOSIS [None]
  - HEPATITIS CHOLESTATIC [None]
